FAERS Safety Report 18680720 (Version 2)
Quarter: 2021Q1

REPORT INFORMATION
  Report Type: Report from Study
  Country: US (occurrence: US)
  Receive Date: 20201229
  Receipt Date: 20210104
  Transmission Date: 20210419
  Serious: No
  Sender: FDA-Public Use
  Company Number: NVSC2020US342148

PATIENT
  Sex: Male

DRUGS (1)
  1. COSENTYX [Suspect]
     Active Substance: SECUKINUMAB
     Indication: PRODUCT USED FOR UNKNOWN INDICATION
     Dosage: 300 MG, QMO (TWO PENS ONCE A MONTH)
     Route: 058

REACTIONS (3)
  - Incorrect dose administered [Unknown]
  - Nerve injury [Unknown]
  - Accidental exposure to product [Unknown]
